FAERS Safety Report 5317337-4 (Version None)
Quarter: 2007Q2

REPORT INFORMATION
  Report Type: 
  Country: None (occurrence: None)
  Receive Date: 20070504
  Receipt Date: 20070425
  Transmission Date: 20071010
  Serious: Yes (Other)
  Sender: FDA-Public Use
  Company Number: JP-PFIZER INC-2007034020

PATIENT

DRUGS (2)
  1. ALDACTONE [Suspect]
     Route: 048
  2. SOLDACTONE [Suspect]
     Route: 048

REACTIONS (1)
  - METRORRHAGIA [None]
